FAERS Safety Report 7110780-2 (Version None)
Quarter: 2010Q4

REPORT INFORMATION
  Report Type: 
  Country: None (occurrence: None)
  Receive Date: 20101116
  Receipt Date: 20101116
  Transmission Date: 20110411
  Serious: No
  Sender: FDA-Public Use
  Company Number: None

PATIENT
  Age: 55 Year
  Sex: Female
  Weight: 79.3795 kg

DRUGS (2)
  1. ZOLPIDEM [Suspect]
     Indication: INSOMNIA
     Dosage: 6 NIGHTS
     Dates: start: 20101105, end: 20101110
  2. ZOLPIDEM [Suspect]
     Indication: MAJOR DEPRESSION
     Dosage: 6 NIGHTS
     Dates: start: 20101105, end: 20101110

REACTIONS (2)
  - DRUG INEFFECTIVE [None]
  - INSOMNIA [None]
